FAERS Safety Report 21883943 (Version 1)
Quarter: 2023Q1

REPORT INFORMATION
  Report Type: Spontaneous
  Country: US (occurrence: US)
  Receive Date: 20230119
  Receipt Date: 20230119
  Transmission Date: 20230417
  Serious: Yes (Hospitalization)
  Sender: FDA-Public Use
  Company Number: US-UNITED THERAPEUTICS-UNT-2022-029555

PATIENT
  Age: 0 Year
  Sex: Male
  Weight: 7.256 kg

DRUGS (4)
  1. REMODULIN [Suspect]
     Active Substance: TREPROSTINIL
     Indication: Pulmonary arterial hypertension
     Dosage: UNK, CONTINUING
     Route: 058
     Dates: start: 20221123
  2. REMODULIN [Suspect]
     Active Substance: TREPROSTINIL
     Dosage: 0.033 ?G/KG, CONTINUING (SELF-FILLED WITH 1.7 ML PER CASSETTE AT A PUMP RATE OF 16 MCL PER HOUR)
     Route: 058
     Dates: start: 202211
  3. REMODULIN [Suspect]
     Active Substance: TREPROSTINIL
     Dosage: 0.046 ?G/KG, CONTINUING (SELF-FILLED WITH 2.1 ML, AT A PUMP RATE OF 22 MCL PER HOUR)
     Route: 058
  4. SILDENAFIL [Concomitant]
     Active Substance: SILDENAFIL
     Indication: Product used for unknown indication
     Dosage: UNK
     Route: 065

REACTIONS (6)
  - Upper respiratory tract infection [Unknown]
  - Oxygen consumption increased [Unknown]
  - Nasal congestion [Unknown]
  - Infusion site hypersensitivity [Unknown]
  - Infusion site erythema [Unknown]
  - Dermatitis contact [Unknown]

NARRATIVE: CASE EVENT DATE: 20221101
